FAERS Safety Report 26112703 (Version 1)
Quarter: 2025Q4

REPORT INFORMATION
  Report Type: Spontaneous
  Country: US (occurrence: US)
  Receive Date: 20251202
  Receipt Date: 20251202
  Transmission Date: 20260118
  Serious: No
  Sender: AMGEN
  Company Number: US-AMGEN-USASP2025235472

PATIENT
  Age: 68 Year
  Sex: Female

DRUGS (1)
  1. NEULASTA [Suspect]
     Active Substance: PEGFILGRASTIM
     Indication: Prophylaxis
     Dosage: 6 MILLIGRAM
     Route: 065

REACTIONS (5)
  - Skin irritation [Unknown]
  - Pyrexia [Unknown]
  - Tremor [Unknown]
  - White blood cell count abnormal [Unknown]
  - Rash [Unknown]

NARRATIVE: CASE EVENT DATE: 20251101
